FAERS Safety Report 22005244 (Version 1)
Quarter: 2023Q1

REPORT INFORMATION
  Report Type: Spontaneous
  Country: US (occurrence: None)
  Receive Date: 20230216
  Receipt Date: 20230216
  Transmission Date: 20230417
  Serious: No
  Sender: FDA-Public Use
  Company Number: None

PATIENT
  Age: 64 Year
  Sex: Female
  Weight: 75.6 kg

DRUGS (4)
  1. COSENTYX [Suspect]
     Active Substance: SECUKINUMAB
     Indication: Psoriatic arthropathy
     Dosage: OTHER FREQUENCY : 1X/WK X 4 WKS;?
     Route: 058
     Dates: start: 20230215
  2. DICLOFENAC [Concomitant]
     Active Substance: DICLOFENAC
  3. OMEPRAZOLE [Concomitant]
     Active Substance: OMEPRAZOLE
  4. ZINC [Concomitant]
     Active Substance: ZINC

REACTIONS (3)
  - Nightmare [None]
  - Middle insomnia [None]
  - Diarrhoea [None]

NARRATIVE: CASE EVENT DATE: 20230216
